FAERS Safety Report 6475870-6 (Version None)
Quarter: 2009Q4

REPORT INFORMATION
  Report Type: 
  Country: None (occurrence: None)
  Receive Date: 20091119
  Receipt Date: 20091004
  Transmission Date: 20100525
  Serious: Yes (Other)
  Sender: FDA-Public Use
  Company Number: 2009SP018038

PATIENT
  Age: 41 Year
  Sex: Female

DRUGS (2)
  1. IMPLANON [Suspect]
     Indication: DRUG USE FOR UNKNOWN INDICATION
     Dosage: 1DF; 1 DF; SBDE
     Dates: start: 20010101, end: 20040101
  2. IMPLANON [Suspect]
     Indication: DRUG USE FOR UNKNOWN INDICATION
     Dosage: 1DF; 1 DF; SBDE
     Dates: start: 20040101, end: 20071201

REACTIONS (1)
  - NEOPLASM [None]
